FAERS Safety Report 10046052 (Version 3)
Quarter: 2014Q2

REPORT INFORMATION
  Report Type: Spontaneous
  Country: DE (occurrence: DE)
  Receive Date: 20140331
  Receipt Date: 20140409
  Transmission Date: 20141212
  Serious: Yes (Other)
  Sender: FDA-Public Use
  Company Number: DE-AMGEN-DEUSP2014014373

PATIENT
  Age: 72 Year
  Sex: Female

DRUGS (4)
  1. PROLIA [Suspect]
     Indication: OSTEOPOROSIS POSTMENOPAUSAL
     Dosage: 1 UNK, UNK
     Route: 058
     Dates: start: 20131016
  2. PERINDOPRIL [Concomitant]
     Indication: HYPERTENSION
     Dosage: 0.625 UNK, UNK
     Route: 048
  3. CONCOR [Concomitant]
     Dosage: 1.25 UNK, UNK
     Route: 048
  4. OMEP                               /00661201/ [Concomitant]

REACTIONS (9)
  - Arrhythmia [Unknown]
  - Hyperaesthesia [Not Recovered/Not Resolved]
  - Muscle spasms [Unknown]
  - Muscle tightness [Unknown]
  - Back pain [Not Recovered/Not Resolved]
  - Bone pain [Unknown]
  - Discomfort [Unknown]
  - Musculoskeletal pain [Not Recovered/Not Resolved]
  - Pain in extremity [Not Recovered/Not Resolved]
